FAERS Safety Report 5877917-4 (Version None)
Quarter: 2008Q3

REPORT INFORMATION
  Report Type: 
  Country: None (occurrence: None)
  Receive Date: 20080911
  Receipt Date: 20080905
  Transmission Date: 20090109
  Serious: Yes (Death)
  Sender: FDA-Public Use
  Company Number: A0746876A

PATIENT
  Age: 93 Year
  Sex: Male
  Weight: 70 kg

DRUGS (2)
  1. SERETIDE [Suspect]
     Indication: BRONCHITIS
     Route: 055
     Dates: start: 20060801, end: 20070821
  2. SPIRIVA [Concomitant]
     Dates: start: 20060101, end: 20070821

REACTIONS (1)
  - MULTI-ORGAN FAILURE [None]
